FAERS Safety Report 8073693-8 (Version None)
Quarter: 2012Q1

REPORT INFORMATION
  Report Type: 
  Country: None (occurrence: None)
  Receive Date: 20120126
  Receipt Date: 20120120
  Transmission Date: 20120608
  Serious: Yes (Death, Life-Threatening, Hospitalization, Other)
  Sender: FDA-Public Use
  Company Number: PHHO2012BR001148

PATIENT
  Sex: Male
  Weight: 53 kg

DRUGS (6)
  1. BLINDED NO TREATMENT RECEIVED [Suspect]
     Indication: CARDIAC FAILURE CHRONIC
     Dosage: NO TREATMENT
  2. ENALAPRIL MALEATE [Suspect]
     Indication: CARDIAC FAILURE CHRONIC
     Dosage: NO TREATMENT
  3. VALSARTAN [Suspect]
     Indication: CARDIAC FAILURE CHRONIC
     Dosage: 200 MG, QD
     Route: 048
     Dates: start: 20111222, end: 20120112
  4. FUROSEMIDE [Suspect]
     Dosage: UNK
     Route: 048
     Dates: start: 20120113
  5. FUROSEMIDE [Suspect]
     Indication: CARDIAC FAILURE CONGESTIVE
     Dosage: 40 MG, QD
     Dates: start: 20111222, end: 20120112
  6. VALSARTAN [Suspect]
     Indication: CARDIAC FAILURE CHRONIC
     Dosage: NO TREATMENT

REACTIONS (6)
  - CARDIAC ARREST [None]
  - BLOOD POTASSIUM INCREASED [None]
  - VENTRICULAR FIBRILLATION [None]
  - AMERICAN TRYPANOSOMIASIS [None]
  - BLOOD CREATININE INCREASED [None]
  - CARDIOGENIC SHOCK [None]
